FAERS Safety Report 19739099 (Version 6)
Quarter: 2021Q3

REPORT INFORMATION
  Report Type: Report from Study
  Country: AU (occurrence: AU)
  Receive Date: 20210823
  Receipt Date: 20210927
  Transmission Date: 20211014
  Serious: Yes (Hospitalization)
  Sender: FDA-Public Use
  Company Number: AU-EISAI MEDICAL RESEARCH-EC-2021-098113

PATIENT
  Age: 64 Year
  Sex: Male
  Weight: 85.6 kg

DRUGS (8)
  1. LENVATINIB [Suspect]
     Active Substance: LENVATINIB
     Indication: COLORECTAL CANCER
     Route: 048
     Dates: start: 20210805, end: 20210812
  2. DUODART [Concomitant]
     Active Substance: DUTASTERIDE\TAMSULOSIN
     Dates: start: 202103
  3. APO?FRUSEMIDE [Concomitant]
     Dates: start: 20210705
  4. PEMBROLIZUMAB. [Suspect]
     Active Substance: PEMBROLIZUMAB
     Indication: COLORECTAL CANCER
     Route: 041
     Dates: start: 20210805, end: 20210805
  5. PANTOPRAZOLE [Concomitant]
     Active Substance: PANTOPRAZOLE
     Dates: start: 202102
  6. DULOXETINE HYDROCHLORIDE. [Concomitant]
     Active Substance: DULOXETINE HYDROCHLORIDE
     Dates: start: 202106
  7. ELIQUIS [Concomitant]
     Active Substance: APIXABAN
     Dates: start: 202102
  8. LENVATINIB [Suspect]
     Active Substance: LENVATINIB
     Dosage: STARTING DOSE AT 14 MG, FLUCTUATED DOSAGE
     Route: 048
     Dates: start: 20210819

REACTIONS (1)
  - Fatigue [Recovered/Resolved with Sequelae]

NARRATIVE: CASE EVENT DATE: 20210806
